FAERS Safety Report 14647324 (Version 1)
Quarter: 2018Q1

REPORT INFORMATION
  Report Type: Spontaneous
  Country: US (occurrence: US)
  Receive Date: 20180315
  Receipt Date: 20180315
  Transmission Date: 20180509
  Serious: Yes (Disabling, Other)
  Sender: FDA-Public Use
  Company Number: None

PATIENT
  Age: 51 Year
  Sex: Female
  Weight: 76.05 kg

DRUGS (5)
  1. BOTOX [Suspect]
     Active Substance: ONABOTULINUMTOXINA
     Indication: MIGRAINE PROPHYLAXIS
     Dosage: QUANTITY:36 INJECTION(S);OTHER FREQUENCY:EVERY 3 MONTHS;?
     Route: 030
     Dates: start: 20180213
  2. PROTONIX [Concomitant]
     Active Substance: PANTOPRAZOLE SODIUM
  3. MAGNESIUM [Concomitant]
     Active Substance: MAGNESIUM
  4. VITAMIN D3 [Concomitant]
     Active Substance: CHOLECALCIFEROL
  5. TRAZODONE [Concomitant]
     Active Substance: TRAZODONE HYDROCHLORIDE

REACTIONS (18)
  - Disturbance in attention [None]
  - Back pain [None]
  - Musculoskeletal stiffness [None]
  - Chills [None]
  - Heart valve incompetence [None]
  - Depressed level of consciousness [None]
  - Head discomfort [None]
  - Asthma [None]
  - Herpes zoster [None]
  - Facial paralysis [None]
  - Vision blurred [None]
  - Pyrexia [None]
  - Cough [None]
  - Headache [None]
  - Neck pain [None]
  - Hypersensitivity [None]
  - Migraine [None]
  - Dyspnoea [None]

NARRATIVE: CASE EVENT DATE: 20180213
